FAERS Safety Report 6094978-0 (Version None)
Quarter: 2009Q1

REPORT INFORMATION
  Report Type: 
  Country: None (occurrence: None)
  Receive Date: 20090227
  Receipt Date: 20090217
  Transmission Date: 20090719
  Serious: Yes (Hospitalization, Other)
  Sender: FDA-Public Use
  Company Number: AT-PFIZER INC-2009151876

PATIENT

DRUGS (2)
  1. VIAGRA [Suspect]
     Dosage: UNK, PRN
     Route: 048
     Dates: start: 20081226
  2. MARCUMAR [Concomitant]
     Dosage: UNK

REACTIONS (3)
  - ARRHYTHMIA [None]
  - SYNCOPE [None]
  - VISUAL IMPAIRMENT [None]
